FAERS Safety Report 19293077 (Version 2)
Quarter: 2021Q2

REPORT INFORMATION
  Report Type: Spontaneous
  Country: US (occurrence: US)
  Receive Date: 20210524
  Receipt Date: 20210629
  Transmission Date: 20210717
  Serious: No
  Sender: FDA-Public Use
  Company Number: US-SA-2021SA164607

PATIENT
  Sex: Female

DRUGS (1)
  1. CLEXANE [Suspect]
     Active Substance: ENOXAPARIN SODIUM
     Dosage: 100 MG/ML
     Route: 065

REACTIONS (5)
  - Injection site discolouration [Unknown]
  - Contusion [Unknown]
  - Incorrect route of product administration [Unknown]
  - Haematoma [Unknown]
  - Needle issue [Unknown]
